FAERS Safety Report 10774144 (Version 1)
Quarter: 2015Q1

REPORT INFORMATION
  Report Type: Spontaneous
  Country: US (occurrence: US)
  Receive Date: 20150208
  Receipt Date: 20150208
  Transmission Date: 20150721
  Serious: No
  Sender: FDA-Public Use
  Company Number: US-ACORDA-ACO_31701_2012

PATIENT
  Age: 63 Year
  Sex: Female
  Weight: 47.62 kg

DRUGS (9)
  1. ALENDRONATE SODIUM. [Concomitant]
     Active Substance: ALENDRONATE SODIUM
     Indication: PRODUCT USED FOR UNKNOWN INDICATION
  2. AMPYRA [Suspect]
     Active Substance: DALFAMPRIDINE
     Indication: GAIT DISTURBANCE
     Dosage: 10 MG, Q 12 HRS
     Route: 048
     Dates: start: 20120729
  3. AMPYRA [Suspect]
     Active Substance: DALFAMPRIDINE
     Indication: MULTIPLE SCLEROSIS
  4. TIZANIDINE (TIZANIDINE) [Concomitant]
     Active Substance: TIZANIDINE
     Indication: PRODUCT USED FOR UNKNOWN INDICATION
     Dosage: 2 MG, UNK
  5. OMEPRAZOLE. [Concomitant]
     Active Substance: OMEPRAZOLE
     Indication: PRODUCT USED FOR UNKNOWN INDICATION
  6. METHOTREXATE SODIUM. [Concomitant]
     Active Substance: METHOTREXATE SODIUM
     Indication: PRODUCT USED FOR UNKNOWN INDICATION
     Dosage: 2.5 MG, UNK
  7. FOLIC ACID. [Concomitant]
     Active Substance: FOLIC ACID
     Indication: PRODUCT USED FOR UNKNOWN INDICATION
     Dosage: 1 MG, UNK
  8. CALCIUM [Concomitant]
     Active Substance: CALCIUM
     Indication: PRODUCT USED FOR UNKNOWN INDICATION
  9. JOINT FORMULA [Concomitant]
     Indication: PRODUCT USED FOR UNKNOWN INDICATION

REACTIONS (4)
  - Discomfort [Not Recovered/Not Resolved]
  - Pain in extremity [Unknown]
  - Activities of daily living impaired [Not Recovered/Not Resolved]
  - Drug ineffective [Unknown]

NARRATIVE: CASE EVENT DATE: 2012
